FAERS Safety Report 16863286 (Version 3)
Quarter: 2020Q3

REPORT INFORMATION
  Report Type: Spontaneous
  Country: US (occurrence: US)
  Receive Date: 20190927
  Receipt Date: 20200818
  Transmission Date: 20201102
  Serious: Yes (Other)
  Sender: FDA-Public Use
  Company Number: US-GILEAD-2019-0429552

PATIENT
  Age: 72 Year
  Sex: Male
  Weight: 65.76 kg

DRUGS (21)
  1. CEPHALEXIN [CEFALEXIN] [Concomitant]
     Active Substance: CEPHALEXIN
  2. TRADJENTA [Concomitant]
     Active Substance: LINAGLIPTIN
  3. GABAPENTIN. [Concomitant]
     Active Substance: GABAPENTIN
  4. INSULIN [Concomitant]
     Active Substance: INSULIN NOS
  5. METHYLPREDNIS [Concomitant]
  6. FLUTICASONE. [Concomitant]
     Active Substance: FLUTICASONE
  7. TRUVADA [Suspect]
     Active Substance: EMTRICITABINE\TENOFOVIR DISOPROXIL FUMARATE
     Indication: HIV INFECTION
     Dosage: UNK
     Route: 048
     Dates: start: 2004
  8. EMTRIVA [Concomitant]
     Active Substance: EMTRICITABINE
  9. NORVIR [Concomitant]
     Active Substance: RITONAVIR
  10. LANTUS [Concomitant]
     Active Substance: INSULIN GLARGINE
  11. ONE TOUCH [Concomitant]
     Active Substance: DEXTROSE
  12. NOVOLOG [Concomitant]
     Active Substance: INSULIN ASPART
  13. LEVEMIR [Concomitant]
     Active Substance: INSULIN DETEMIR
  14. COMBIVIR [Concomitant]
     Active Substance: LAMIVUDINE\ZIDOVUDINE
  15. PREZISTA [Concomitant]
     Active Substance: DARUNAVIR ETHANOLATE
  16. DIALYVITE [Concomitant]
     Active Substance: ASCORBIC ACID\BIOTIN\CALCIUM PANTOTHENATE\COBALAMIN\FOLIC ACID\NIACINAMIDE\PYRIDOXINE HYDROCHLORIDE\RIBOFLAVIN\THIAMINE MONONITRATE
  17. JULUCA [Concomitant]
     Active Substance: DOLUTEGRAVIR SODIUM\RILPIVIRINE HYDROCHLORIDE
  18. CIPROFLOXACIN. [Concomitant]
     Active Substance: CIPROFLOXACIN
  19. DIAZEPAM. [Concomitant]
     Active Substance: DIAZEPAM
  20. TRIAMTERENE. [Concomitant]
     Active Substance: TRIAMTERENE
  21. HUMALOG [Concomitant]
     Active Substance: INSULIN LISPRO

REACTIONS (12)
  - Pain [Not Recovered/Not Resolved]
  - Anxiety [Not Recovered/Not Resolved]
  - Renal disorder [Not Recovered/Not Resolved]
  - Fatigue [Unknown]
  - Anhedonia [Not Recovered/Not Resolved]
  - Economic problem [Not Recovered/Not Resolved]
  - Loss of personal independence in daily activities [Not Recovered/Not Resolved]
  - Quality of life decreased [Not Recovered/Not Resolved]
  - End stage renal disease [Not Recovered/Not Resolved]
  - Renal failure [Unknown]
  - Decreased activity [Not Recovered/Not Resolved]
  - Emotional distress [Not Recovered/Not Resolved]

NARRATIVE: CASE EVENT DATE: 201212
